FAERS Safety Report 7406168-7 (Version None)
Quarter: 2011Q2

REPORT INFORMATION
  Report Type: 
  Country: None (occurrence: None)
  Receive Date: 20110401
  Receipt Date: 20110325
  Transmission Date: 20111010
  Serious: Yes (Hospitalization)
  Sender: FDA-Public Use
  Company Number: UTC-005356

PATIENT
  Age: 3 Year
  Sex: Female
  Weight: 13.6 kg

DRUGS (3)
  1. REVATIO [Concomitant]
  2. TRACLEER [Concomitant]
  3. REMODULIN [Suspect]
     Indication: PULMONARY ARTERIAL HYPERTENSION
     Dosage: 90.72 UG/KG (0.063 UG/KG,1 IN 1 MIN),INTRAVENOUS
     Route: 042
     Dates: start: 20100301

REACTIONS (2)
  - LOBAR PNEUMONIA [None]
  - BACTERIAL INFECTION [None]
